FAERS Safety Report 9678463 (Version 2)
Quarter: 2013Q4

REPORT INFORMATION
  Report Type: Spontaneous
  Country: US (occurrence: US)
  Receive Date: 20131108
  Receipt Date: 20131126
  Transmission Date: 20140711
  Serious: Yes (Death)
  Sender: FDA-Public Use
  Company Number: US-BRISTOL-MYERS SQUIBB COMPANY-19411206

PATIENT
  Age: 59 Year
  Sex: Male

DRUGS (10)
  1. ABATACEPT SUBQ INJECTION 125MG/ML [Suspect]
     Indication: PSORIATIC ARTHROPATHY
     Route: 058
     Dates: start: 201307
  2. ALLOPURINOL [Concomitant]
  3. AMBIEN [Concomitant]
  4. FERROUS SULFATE [Concomitant]
  5. CHONDROITIN SULFATE + GLUCOSAMINE [Concomitant]
  6. LACTULOSE [Concomitant]
  7. LANTUS [Concomitant]
  8. NEXIUM [Concomitant]
  9. NOVOLOG [Concomitant]
  10. SPIRONOLACTONE [Concomitant]

REACTIONS (1)
  - Cirrhosis alcoholic [Fatal]
